FAERS Safety Report 6811159-0 (Version None)
Quarter: 2010Q2

REPORT INFORMATION
  Report Type: 
  Country: None (occurrence: None)
  Receive Date: 20100629
  Receipt Date: 20100629
  Transmission Date: 20101027
  Serious: Yes (Other)
  Sender: FDA-Public Use
  Company Number: None

PATIENT
  Sex: Female
  Weight: 49.8957 kg

DRUGS (2)
  1. FOSAMAX [Suspect]
     Indication: OSTEOPENIA
     Dosage: 70 MG 1-A-WK ORAL
     Route: 048
     Dates: start: 20080105, end: 20090215
  2. FOSAMAX [Suspect]
     Indication: OSTEOPOROSIS
     Dosage: 70 MG 1-A-WK ORAL
     Route: 048
     Dates: start: 20080105, end: 20090215

REACTIONS (10)
  - ABDOMINAL DISTENSION [None]
  - BONE DENSITY DECREASED [None]
  - DIARRHOEA [None]
  - DRUG INEFFECTIVE [None]
  - DYSPEPSIA [None]
  - DYSPHAGIA [None]
  - ERUCTATION [None]
  - FLATULENCE [None]
  - GINGIVAL PAIN [None]
  - TREATMENT FAILURE [None]
